FAERS Safety Report 19000432 (Version 2)
Quarter: 2021Q1

REPORT INFORMATION
  Report Type: Spontaneous
  Country: US (occurrence: US)
  Receive Date: 20210311
  Receipt Date: 20210324
  Transmission Date: 20210420
  Serious: Yes (Other)
  Sender: FDA-Public Use
  Company Number: US-ASTRAZENECA-2021A110624

PATIENT
  Age: 25975 Day
  Sex: Male
  Weight: 73.5 kg

DRUGS (2)
  1. TYLENOL [Concomitant]
     Active Substance: ACETAMINOPHEN
  2. FASENRA [Suspect]
     Active Substance: BENRALIZUMAB
     Indication: EOSINOPHIL COUNT INCREASED
     Route: 058
     Dates: start: 20210301

REACTIONS (5)
  - Pneumonia [Unknown]
  - Eosinophil count increased [Unknown]
  - Mastication disorder [Unknown]
  - Tremor [Unknown]
  - Temporomandibular joint syndrome [Unknown]

NARRATIVE: CASE EVENT DATE: 20210301
